FAERS Safety Report 17010216 (Version 1)
Quarter: 2019Q4

REPORT INFORMATION
  Report Type: Spontaneous
  Country: US (occurrence: US)
  Receive Date: 20191107
  Receipt Date: 20191107
  Transmission Date: 20200122
  Serious: Yes (Disabling)
  Sender: FDA-Public Use
  Company Number: None

PATIENT
  Age: 61 Year
  Sex: Female
  Weight: 110.25 kg

DRUGS (1)
  1. LOSARTAN POTASSIUM. [Suspect]
     Active Substance: LOSARTAN POTASSIUM
     Indication: BLOOD PRESSURE MEASUREMENT
     Dosage: ?          QUANTITY:90 TABLET(S);?
     Route: 048
     Dates: start: 20191007, end: 20191105

REACTIONS (7)
  - Pain in extremity [None]
  - Musculoskeletal chest pain [None]
  - Myalgia [None]
  - Hypokinesia [None]
  - Gait inability [None]
  - Laboratory test interference [None]
  - Back pain [None]

NARRATIVE: CASE EVENT DATE: 20191007
